FAERS Safety Report 10209755 (Version 1)
Quarter: 2014Q2

REPORT INFORMATION
  Report Type: Spontaneous
  Country: US (occurrence: US)
  Receive Date: 20140602
  Receipt Date: 20140602
  Transmission Date: 20141212
  Serious: Yes (Hospitalization)
  Sender: FDA-Public Use
  Company Number: US-ROCHE-1410256

PATIENT
  Age: 75 Year
  Sex: Male

DRUGS (2)
  1. GAZYVA [Suspect]
     Indication: PRODUCT USED FOR UNKNOWN INDICATION
     Route: 065
  2. CHLORAMBUCIL [Concomitant]

REACTIONS (1)
  - Blood count abnormal [Unknown]
